FAERS Safety Report 14417009 (Version 4)
Quarter: 2019Q3

REPORT INFORMATION
  Report Type: Spontaneous
  Country: US (occurrence: US)
  Receive Date: 20180122
  Receipt Date: 20190909
  Transmission Date: 20191004
  Serious: No
  Sender: FDA-Public Use
  Company Number: US-PFIZER INC-2018026974

PATIENT
  Age: 67 Year
  Sex: Female

DRUGS (2)
  1. EFFEXOR XR [Suspect]
     Active Substance: VENLAFAXINE HYDROCHLORIDE
     Dosage: 150 MG, UNK
  2. EFFEXOR XR [Suspect]
     Active Substance: VENLAFAXINE HYDROCHLORIDE
     Dosage: 75 MG, UNK

REACTIONS (10)
  - Dizziness [Recovered/Resolved]
  - Nausea [Unknown]
  - Headache [Unknown]
  - Depression [Unknown]
  - Drug withdrawal syndrome [Unknown]
  - Depressed mood [Unknown]
  - Nasopharyngitis [Unknown]
  - Anger [Unknown]
  - Intentional product misuse [Unknown]
  - Feeling jittery [Unknown]
